FAERS Safety Report 5844049-0 (Version None)
Quarter: 2008Q3

REPORT INFORMATION
  Report Type: 
  Country: None (occurrence: None)
  Receive Date: 20080813
  Receipt Date: 20080804
  Transmission Date: 20090109
  Serious: Yes (Death, Hospitalization)
  Sender: FDA-Public Use
  Company Number: IE-ELI_LILLY_AND_COMPANY-IE200608002016

PATIENT
  Sex: Female

DRUGS (6)
  1. CYMBALTA [Suspect]
     Dosage: 60 MG, 2/D
     Route: 048
     Dates: start: 20060524
  2. LARGACTIL [Concomitant]
     Dosage: UNK, UNKNOWN
     Route: 065
  3. LIBRIUM [Concomitant]
     Dosage: 5 MG, 3/D
     Route: 065
  4. CLONAZINE [Concomitant]
     Dosage: 75 MG, EACH EVENING
     Route: 065
  5. TRYPTIZOL [Concomitant]
     Dosage: 50 MG, EACH EVENING
     Route: 065
  6. ZOLPIDEM TARTRATE [Concomitant]
     Dosage: 20 MG, EACH EVENING
     Route: 065

REACTIONS (2)
  - DEATH [None]
  - SEROTONIN SYNDROME [None]
